FAERS Safety Report 6422943-X (Version None)
Quarter: 2009Q4

REPORT INFORMATION
  Report Type: 
  Country: None (occurrence: None)
  Receive Date: 20091102
  Receipt Date: 20091028
  Transmission Date: 20100525
  Serious: Yes (Death)
  Sender: FDA-Public Use
  Company Number: PHEH2009US12110

PATIENT
  Sex: Male
  Weight: 64 kg

DRUGS (8)
  1. EXJADE [Suspect]
     Indication: MYELODYSPLASTIC SYNDROME
     Dosage: 1000 MG, QD
     Route: 048
     Dates: start: 20060824, end: 20070701
  2. EXJADE [Suspect]
     Indication: SERUM FERRITIN INCREASED
  3. AMIODARONE [Concomitant]
     Dosage: 200 MG, QD
     Route: 048
  4. WARFARIN SODIUM [Concomitant]
     Dosage: UNK
     Route: 048
  5. PREVACID [Concomitant]
     Indication: GASTROOESOPHAGEAL REFLUX DISEASE
     Dosage: 20 MG, QD
     Route: 048
  6. ADVAIR DISKUS 100/50 [Concomitant]
     Indication: CHRONIC OBSTRUCTIVE PULMONARY DISEASE
     Dosage: 1 UNK, UNK
  7. FLONASE [Concomitant]
     Indication: RHINITIS ALLERGIC
     Dosage: UNK
  8. REVLIMID [Concomitant]
     Dosage: 5 MG, UNK

REACTIONS (9)
  - DISEASE PROGRESSION [None]
  - HAEMOGLOBIN DECREASED [None]
  - MYELODYSPLASTIC SYNDROME [None]
  - PLATELET COUNT DECREASED [None]
  - PYREXIA [None]
  - SEPTIC SHOCK [None]
  - TACHYCARDIA [None]
  - TACHYPNOEA [None]
  - UNRESPONSIVE TO STIMULI [None]
